FAERS Safety Report 5002873-0 (Version None)
Quarter: 2006Q2

REPORT INFORMATION
  Report Type: 
  Country: None (occurrence: None)
  Receive Date: 20060516
  Receipt Date: 20060511
  Transmission Date: 20061013
  Serious: Yes (Life-Threatening)
  Sender: FDA-Public Use
  Company Number: 2006SE02686

PATIENT
  Age: 76 Year
  Sex: Male

DRUGS (2)
  1. BLOPRESS [Suspect]
     Indication: HYPERTENSION
     Route: 048
     Dates: start: 20060501, end: 20060502
  2. BLOPRESS [Suspect]
     Route: 048
     Dates: start: 20060503, end: 20060503

REACTIONS (1)
  - PHARYNGEAL OEDEMA [None]
